FAERS Safety Report 9280079 (Version 1)
Quarter: 2013Q2

REPORT INFORMATION
  Report Type: Spontaneous
  Country: US (occurrence: None)
  Receive Date: 20130507
  Receipt Date: 20130507
  Transmission Date: 20140414
  Serious: No
  Sender: FDA-Public Use
  Company Number: None

PATIENT
  Age: 44 Year
  Sex: Female
  Weight: 57.15 kg

DRUGS (1)
  1. ULTRAVIST [Suspect]
     Route: 042

REACTIONS (3)
  - Feeling abnormal [None]
  - Mental status changes [None]
  - Loss of consciousness [None]
